FAERS Safety Report 13355747 (Version 2)
Quarter: 2017Q2

REPORT INFORMATION
  Report Type: Spontaneous
  Country: US (occurrence: US)
  Receive Date: 20170321
  Receipt Date: 20170404
  Transmission Date: 20170830
  Serious: Yes (Hospitalization)
  Sender: FDA-Public Use
  Company Number: US-INCYTE CORPORATION-2017IN001063

PATIENT
  Age: 54 Year
  Sex: Female

DRUGS (3)
  1. JAKAFI [Suspect]
     Active Substance: RUXOLITINIB
     Dosage: 5 MG, BID
     Route: 048
     Dates: start: 20170210, end: 20170311
  2. JAKAFI [Suspect]
     Active Substance: RUXOLITINIB
     Dosage: NOT SPECIFIED
     Dates: start: 20170319
  3. JAKAFI [Suspect]
     Active Substance: RUXOLITINIB
     Indication: MYELOFIBROSIS
     Dosage: NOT SPECIFIED
     Route: 048

REACTIONS (5)
  - Cellulitis [Unknown]
  - Streptococcal infection [Unknown]
  - Gout [Unknown]
  - Localised infection [Unknown]
  - Joint injury [Unknown]

NARRATIVE: CASE EVENT DATE: 20170311
